FAERS Safety Report 25442040 (Version 1)
Quarter: 2025Q2

REPORT INFORMATION
  Report Type: Spontaneous
  Country: US (occurrence: US)
  Receive Date: 20250616
  Receipt Date: 20250616
  Transmission Date: 20250716
  Serious: Yes (Hospitalization)
  Sender: BIOMARIN
  Company Number: US-BIOMARINAP-US-2025-166557

PATIENT

DRUGS (2)
  1. NAGLAZYME [Suspect]
     Active Substance: GALSULFASE
     Indication: Mucopolysaccharidosis II
     Dosage: 30 MILLIGRAM, QW
     Route: 042
     Dates: start: 202008
  2. METHYLPREDNISOLONE SODIUM SUCCINATE [Concomitant]
     Active Substance: METHYLPREDNISOLONE SODIUM SUCCINATE
     Indication: Product used for unknown indication

REACTIONS (2)
  - Central venous catheterisation [Unknown]
  - Off label use [Unknown]

NARRATIVE: CASE EVENT DATE: 20200801
